FAERS Safety Report 6862715-5 (Version None)
Quarter: 2010Q3

REPORT INFORMATION
  Report Type: 
  Country: None (occurrence: None)
  Receive Date: 20100721
  Receipt Date: 20100716
  Transmission Date: 20110219
  Serious: Yes (Other)
  Sender: FDA-Public Use
  Company Number: US-GILEAD-2010-0029626

PATIENT
  Sex: Female
  Weight: 147.55 kg

DRUGS (14)
  1. LETAIRIS [Suspect]
     Indication: PULMONARY ARTERIAL HYPERTENSION
     Route: 048
     Dates: start: 20100430, end: 20100530
  2. ATENOLOL [Concomitant]
  3. CELEBREX [Concomitant]
  4. CIPRO [Concomitant]
  5. PREMARIN [Concomitant]
  6. DIFLUCAN [Concomitant]
  7. VICODIN [Concomitant]
  8. FAMCICLOVIR [Concomitant]
  9. ADVAIR DISKUS 100/50 [Concomitant]
  10. CALCIUM [Concomitant]
  11. ZOVIRAX [Concomitant]
  12. MULTI-VITAMIN [Concomitant]
  13. VITAMIN C [Concomitant]
  14. EXCEDRIN (MIGRAINE) [Concomitant]

REACTIONS (4)
  - CHROMATURIA [None]
  - FAECES DISCOLOURED [None]
  - HEPATITIS [None]
  - MALAISE [None]
